FAERS Safety Report 9530378 (Version 3)
Quarter: 2015Q2

REPORT INFORMATION
  Report Type: Report from Study
  Country: US (occurrence: US)
  Receive Date: 20130918
  Receipt Date: 20150402
  Transmission Date: 20150821
  Serious: Yes (Death)
  Sender: FDA-Public Use
  Company Number: US-ROCHE-1045610

PATIENT
  Age: 65 Year
  Sex: Female
  Weight: 72.7 kg

DRUGS (17)
  1. ALEVE [Concomitant]
     Active Substance: NAPROXEN SODIUM
     Indication: RHEUMATOID ARTHRITIS
     Route: 048
     Dates: start: 2004
  2. ALEVE [Concomitant]
     Active Substance: NAPROXEN SODIUM
     Route: 048
     Dates: start: 20100201
  3. FOLINIC ACID [Concomitant]
     Active Substance: LEUCOVORIN
     Route: 065
     Dates: start: 20100821, end: 20120218
  4. PLACEBO [Suspect]
     Active Substance: UNSPECIFIED INGREDIENT
     Indication: RHEUMATOID ARTHRITIS
     Route: 042
     Dates: start: 20100216
  5. METHOTREXATE [Suspect]
     Active Substance: METHOTREXATE
     Route: 048
     Dates: start: 20100319
  6. OMEGA 3 FATTY ACIDS [Concomitant]
     Active Substance: OMEGA-3 FATTY ACIDS
     Route: 065
     Dates: start: 200902
  7. PLACEBO [Suspect]
     Active Substance: UNSPECIFIED INGREDIENT
     Dosage: LAST DOSE PRIOR TO SAE: 17 FEB 2011
     Route: 042
     Dates: start: 20100319
  8. ESTER-C (UNITED STATES) [Concomitant]
     Route: 065
     Dates: start: 200902
  9. VITAMIN B12 [Concomitant]
     Active Substance: CYANOCOBALAMIN
     Route: 065
     Dates: start: 200902
  10. TOCILIZUMAB [Suspect]
     Active Substance: TOCILIZUMAB
     Indication: RHEUMATOID ARTHRITIS
     Dosage: LAST DOSE PRIOR TO SAE: 16 FEB 2012
     Route: 042
     Dates: start: 20110322
  11. LYSINE [Concomitant]
     Active Substance: LYSINE
     Route: 065
     Dates: start: 200902
  12. VITAMIN E [Concomitant]
     Active Substance: .ALPHA.-TOCOPHEROL
     Route: 065
     Dates: start: 200902
  13. VITAMIN D3 [Concomitant]
     Active Substance: CHOLECALCIFEROL
     Route: 065
     Dates: start: 200902
  14. SUPER B COMPLEX [Concomitant]
     Active Substance: CYANOCOBALAMIN\DEXPANTHENOL\NIACINAMIDE\PYRIDOXINE HYDROCHLORIDE\RIBOFLAVIN 5^-PHOSPHATE SODIUM\THIAMINE HYDROCHLORIDE\VITAMIN B COMPLEX
     Route: 065
     Dates: start: 200902
  15. GLUCOSAMINE CHONDROITIN COMPLEX [Concomitant]
     Active Substance: CHONDROITIN SULFATE (BOVINE)\GLUCOSAMINE HYDROCHLORIDE
     Dosage: 4500/3600 MG
     Route: 065
     Dates: start: 200902
  16. METHOTREXATE [Suspect]
     Active Substance: METHOTREXATE
     Indication: RHEUMATOID ARTHRITIS
     Dosage: LAST DOSE PRIOR TO SAE: 17/FEB/2012
     Route: 048
     Dates: start: 20110415, end: 20120217
  17. FOLIC ACID. [Concomitant]
     Active Substance: FOLIC ACID
     Route: 048
     Dates: start: 20100319

REACTIONS (1)
  - Small cell lung cancer [Fatal]

NARRATIVE: CASE EVENT DATE: 20120216
